FAERS Safety Report 8733791 (Version 4)
Quarter: 2012Q4

REPORT INFORMATION
  Report Type: 
  Country: JP (occurrence: JP)
  Receive Date: 20120821
  Receipt Date: 20121113
  Transmission Date: 20130627
  Serious: Yes (Hospitalization)
  Sender: FDA-Public Use
  Company Number: JP-AMGEN-JPNCT2012045071

PATIENT
  Age: 78 Year
  Sex: Male
  Weight: 50 kg

DRUGS (20)
  1. DARBEPOETIN ALFA [Suspect]
     Indication: NEPHROGENIC ANAEMIA
     Dosage: 30 mug, q3wk
     Route: 058
     Dates: start: 20110621, end: 20110802
  2. DARBEPOETIN ALFA [Suspect]
     Dosage: 40 mug, q3wk
     Route: 058
     Dates: start: 20110823, end: 20110913
  3. DARBEPOETIN ALFA [Suspect]
     Dosage: 40 mug, q3wk
     Route: 058
     Dates: start: 20110927, end: 20110927
  4. DARBEPOETIN ALFA [Suspect]
     Dosage: 40 mug, q3wk
     Route: 058
     Dates: start: 20111018, end: 20120515
  5. DARBEPOETIN ALFA [Suspect]
     Dosage: 40 mug, q3wk
     Route: 058
     Dates: start: 20120529, end: 20120619
  6. ALOSITOL [Concomitant]
     Dosage: UNK
     Route: 048
  7. FEROTYM [Concomitant]
     Dosage: UNK
     Route: 048
  8. OLMETEC [Concomitant]
     Dosage: UNK
     Route: 048
  9. EXCELASE [Concomitant]
     Indication: GASTRITIS
     Dosage: UNK
     Route: 048
  10. SODIUM BICARBONATE [Concomitant]
     Dosage: UNK
     Route: 048
  11. CARBADOGEN [Concomitant]
     Dosage: UNK
     Route: 048
  12. ATELEC [Concomitant]
     Dosage: UNK
     Route: 048
  13. PROTECADIN [Concomitant]
     Indication: GASTRITIS
     Dosage: UNK
     Route: 048
  14. PRECIPITATED CALCIUM CARBONATE [Concomitant]
     Indication: METABOLIC ACIDOSIS
     Dosage: UNK
     Route: 048
  15. KREMEZIN [Concomitant]
     Indication: GLOMERULONEPHRITIS CHRONIC
     Dosage: UNK
     Route: 048
  16. MOHRUS [Concomitant]
     Dosage: UNK
     Route: 062
  17. SOFTEAR [Concomitant]
     Dosage: UNK
     Route: 047
  18. AMLODIN [Concomitant]
     Dosage: UNK
     Route: 048
  19. OTHER COLD PREPARATIONS [Concomitant]
     Dosage: UNK
     Route: 048
  20. EMPYNASE P [Concomitant]
     Dosage: UNK
     Route: 048

REACTIONS (8)
  - Cholelithiasis [Recovering/Resolving]
  - Cholecystitis [Recovering/Resolving]
  - Bile duct stone [Recovered/Resolved]
  - Pancreatitis [Recovered/Resolved]
  - Aortic valve stenosis [Not Recovered/Not Resolved]
  - Seborrhoeic keratosis [Recovered/Resolved]
  - Eczema [Recovered/Resolved]
  - Biliary colic [Recovered/Resolved]
